FAERS Safety Report 12815362 (Version 1)
Quarter: 2016Q4

REPORT INFORMATION
  Report Type: Report from Study
  Country: CA (occurrence: CA)
  Receive Date: 20161005
  Receipt Date: 20161005
  Transmission Date: 20170207
  Serious: Yes (Other)
  Sender: FDA-Public Use
  Company Number: CA-JNJFOC-20160930258

PATIENT
  Age: 62 Year
  Sex: Female
  Weight: 85 kg

DRUGS (1)
  1. REMICADE [Suspect]
     Active Substance: INFLIXIMAB
     Indication: COLITIS ULCERATIVE
     Route: 042
     Dates: start: 20160429

REACTIONS (1)
  - Systemic lupus erythematosus [Unknown]

NARRATIVE: CASE EVENT DATE: 20160920
